FAERS Safety Report 17018151 (Version 1)
Quarter: 2019Q4

REPORT INFORMATION
  Report Type: Report from Study
  Country: US (occurrence: US)
  Receive Date: 20191111
  Receipt Date: 20191111
  Transmission Date: 20200122
  Serious: No
  Sender: FDA-Public Use
  Company Number: US-BEH-2019109211

PATIENT
  Age: 41 Year
  Sex: Female
  Weight: 114 kg

DRUGS (3)
  1. HAEGARDA [Suspect]
     Active Substance: HUMAN C1-ESTERASE INHIBITOR
     Indication: HEREDITARY ANGIOEDEMA
     Dosage: 6000 UNK, BIW (3 TO 4 DAYS)
     Route: 058
     Dates: start: 20180313
  2. FIRAZYR [Concomitant]
     Active Substance: ICATIBANT ACETATE
  3. HAEGARDA [Suspect]
     Active Substance: HUMAN C1-ESTERASE INHIBITOR
     Indication: PROPHYLAXIS

REACTIONS (4)
  - Mouth haemorrhage [Unknown]
  - Oral mucosal exfoliation [Unknown]
  - Oral pain [Unknown]
  - Stomatitis [Unknown]

NARRATIVE: CASE EVENT DATE: 20180313
